FAERS Safety Report 11437557 (Version 2)
Quarter: 2015Q3

REPORT INFORMATION
  Report Type: Spontaneous
  Country: CA (occurrence: None)
  Receive Date: 20150831
  Receipt Date: 20150916
  Transmission Date: 20151125
  Serious: Yes (Life-Threatening, Hospitalization, Other)
  Sender: FDA-Public Use
  Company Number: CA-MDT-ADR-2015-01665

PATIENT
  Age: 58 Year
  Sex: Female

DRUGS (1)
  1. LIORESAL [Suspect]
     Active Substance: BACLOFEN
     Dosage: 503.9 MCG/DAY

REACTIONS (14)
  - Meningitis [None]
  - Unevaluable event [None]
  - Confusional state [None]
  - Respiratory failure [None]
  - Medical device site erosion [None]
  - Medical device site infection [None]
  - Incision site infection [None]
  - Renal failure [None]
  - Purulence [None]
  - Somnolence [None]
  - General physical health deterioration [None]
  - Wound dehiscence [None]
  - Seizure [None]
  - Apnoea [None]
